FAERS Safety Report 8923230 (Version 1)
Quarter: 2012Q4

REPORT INFORMATION
  Report Type: 
  Country: US (occurrence: US)
  Receive Date: 20121124
  Receipt Date: 20121124
  Transmission Date: 20130627
  Serious: Yes (Other)
  Sender: FDA-Public Use
  Company Number: US-BAYER-2012-121970

PATIENT

DRUGS (1)
  1. BAYER ASPIRIN REGIMEN REGULAR 325 MG STRENGTH [Suspect]
     Indication: MYOCARDIAL INFARCT PROPHYLAXIS
     Dosage: 1 DF, QD
     Route: 048
     Dates: start: 201205

REACTIONS (1)
  - Bleeding varicose vein [Recovered/Resolved]
